FAERS Safety Report 9936678 (Version 1)
Quarter: 2014Q1

REPORT INFORMATION
  Report Type: Spontaneous
  Country: US (occurrence: US)
  Receive Date: 20140228
  Receipt Date: 20140228
  Transmission Date: 20141002
  Serious: No
  Sender: FDA-Public Use
  Company Number: US-SANOFI-AVENTIS-2013SA092217

PATIENT
  Sex: Female

DRUGS (4)
  1. DIABETA [Suspect]
     Route: 065
  2. AMLODIPINE [Concomitant]
  3. METOPROLOL [Concomitant]
  4. MICARDIS HCT [Concomitant]

REACTIONS (2)
  - Malaise [Unknown]
  - Hypertension [Unknown]
